FAERS Safety Report 6229453-3 (Version None)
Quarter: 2009Q2

REPORT INFORMATION
  Report Type: 
  Country: None (occurrence: None)
  Receive Date: 20090615
  Receipt Date: 20090608
  Transmission Date: 20091009
  Serious: Yes (Hospitalization)
  Sender: FDA-Public Use
  Company Number: A0731299A

PATIENT
  Age: 68 Year
  Sex: Female
  Weight: 82.7 kg

DRUGS (3)
  1. AVANDIA [Suspect]
     Dosage: 6MG PER DAY
     Route: 048
     Dates: start: 20041117, end: 20070101
  2. CPAP [Concomitant]
  3. GLYBURIDE [Concomitant]

REACTIONS (8)
  - BLINDNESS [None]
  - CARDIAC FAILURE CONGESTIVE [None]
  - DYSPNOEA [None]
  - FLUID RETENTION [None]
  - LUNG DISORDER [None]
  - MACULAR OEDEMA [None]
  - RENAL DISORDER [None]
  - SWELLING [None]
